FAERS Safety Report 6044424-8 (Version None)
Quarter: 2009Q1

REPORT INFORMATION
  Report Type: 
  Country: None (occurrence: None)
  Receive Date: 20090115
  Receipt Date: 20090115
  Transmission Date: 20090719
  Serious: No
  Sender: FDA-Public Use
  Company Number: None

PATIENT
  Sex: Male
  Weight: 99.09 kg

DRUGS (7)
  1. NIACIN [Suspect]
     Dosage: 500MG TABLET SA 500 MG QHS ORAL
     Route: 048
     Dates: start: 20080924, end: 20090114
  2. ATENOLOL [Concomitant]
  3. ECASA (ASPIRIN ENTERIC COATED) [Concomitant]
  4. ERGOCALCIFEROL [Concomitant]
  5. HYDROCHLOROTHIAZIDE [Concomitant]
  6. LIPITOR [Concomitant]
  7. LISINOPRIL [Concomitant]

REACTIONS (2)
  - DIZZINESS [None]
  - FLUSHING [None]
